FAERS Safety Report 19257738 (Version 1)
Quarter: 2021Q2

REPORT INFORMATION
  Report Type: Spontaneous
  Country: US (occurrence: US)
  Receive Date: 20210513
  Receipt Date: 20210513
  Transmission Date: 20210717
  Serious: Yes (Other)
  Sender: FDA-Public Use
  Company Number: None

PATIENT
  Age: 59 Year
  Sex: Female
  Weight: 92.25 kg

DRUGS (8)
  1. ASPRIN [Concomitant]
     Active Substance: ASPIRIN
  2. TAMOXIFEN [Concomitant]
     Active Substance: TAMOXIFEN
  3. BACLOFEN 10 MG [Suspect]
     Active Substance: BACLOFEN
     Indication: PAIN IN JAW
     Dosage: ?          QUANTITY:1 TABLET(S);?
     Route: 048
     Dates: start: 20210512, end: 20210512
  4. METFORMIN [Concomitant]
     Active Substance: METFORMIN HYDROCHLORIDE
  5. OMEPRAZOLE. [Concomitant]
     Active Substance: OMEPRAZOLE
  6. LISINOPRIL. [Concomitant]
     Active Substance: LISINOPRIL
  7. ATORVASTATIN [Concomitant]
     Active Substance: ATORVASTATIN
  8. VASCEPA [Concomitant]
     Active Substance: ICOSAPENT ETHYL

REACTIONS (3)
  - Hypoaesthesia [None]
  - Dysarthria [None]
  - Pain in jaw [None]

NARRATIVE: CASE EVENT DATE: 20210512
